FAERS Safety Report 16423878 (Version 2)
Quarter: 2019Q3

REPORT INFORMATION
  Report Type: Spontaneous
  Country: TN (occurrence: TN)
  Receive Date: 20190613
  Receipt Date: 20190729
  Transmission Date: 20191004
  Serious: Yes (Hospitalization)
  Sender: FDA-Public Use
  Company Number: TN-TEVA-2019-TN-1062821

PATIENT
  Age: 54 Year
  Sex: Female

DRUGS (1)
  1. ACITRETIN (NOVATRETIN) [Suspect]
     Active Substance: ACITRETIN
     Indication: PSORIASIS
     Dosage: 10 MILLIGRAM DAILY;
     Route: 048
     Dates: start: 201610, end: 201710

REACTIONS (2)
  - Arthritis bacterial [Recovered/Resolved]
  - Onychomadesis [Unknown]

NARRATIVE: CASE EVENT DATE: 2017
